FAERS Safety Report 9422423 (Version 1)
Quarter: 2013Q3

REPORT INFORMATION
  Report Type: Spontaneous
  Country: US (occurrence: None)
  Receive Date: 20130724
  Receipt Date: 20130724
  Transmission Date: 20140515
  Serious: No
  Sender: FDA-Public Use
  Company Number: JPI-P-033248

PATIENT
  Age: 24 Year
  Sex: Male

DRUGS (1)
  1. XYREM [Suspect]
     Indication: NARCOLEPSY
     Dosage: 5 GM (2.5 GM, 2 IN 1 D), ORAL
     Route: 048
     Dates: start: 20110729, end: 2011

REACTIONS (1)
  - Surgery [None]
